FAERS Safety Report 9692459 (Version 1)
Quarter: 2013Q4

REPORT INFORMATION
  Report Type: Spontaneous
  Country: US (occurrence: US)
  Receive Date: 20131118
  Receipt Date: 20131118
  Transmission Date: 20140711
  Serious: Yes (Other)
  Sender: FDA-Public Use
  Company Number: US-PFIZER INC-2013328035

PATIENT
  Age: 47 Year
  Sex: Male
  Weight: 95.24 kg

DRUGS (4)
  1. CHANTIX [Suspect]
     Indication: SMOKING CESSATION THERAPY
     Dosage: UNK
     Dates: start: 201304, end: 201310
  2. TRUVADA [Concomitant]
     Indication: HIV TEST POSITIVE
     Dosage: 200 MG, DAILY
  3. ISENTRESS [Concomitant]
     Indication: HIV TEST POSITIVE
     Dosage: 400 MG, 2X/DAY
  4. VIAGRA [Concomitant]
     Dosage: UNK
     Dates: start: 201304, end: 201306

REACTIONS (1)
  - Convulsion [Recovered/Resolved]
